FAERS Safety Report 8097614-7 (Version None)
Quarter: 2012Q1

REPORT INFORMATION
  Report Type: 
  Country: None (occurrence: None)
  Receive Date: 20120128
  Receipt Date: 20110705
  Transmission Date: 20120608
  Serious: No
  Sender: FDA-Public Use
  Company Number: US-ABBOTT-11P-163-0836320-00

PATIENT
  Age: 49 Year
  Sex: Female

DRUGS (5)
  1. HUMIRA [Suspect]
     Indication: CROHN'S DISEASE
     Dates: start: 20110317, end: 20110707
  2. TAPAZOLE [Concomitant]
     Indication: HYPERTHYROIDISM
  3. PENTASA [Concomitant]
     Indication: CROHN'S DISEASE
     Dates: start: 20110704
  4. VITAMIN TAB [Concomitant]
     Indication: PRODUCT USED FOR UNKNOWN INDICATION
  5. DOXEPIN [Concomitant]
     Indication: DEPRESSION

REACTIONS (8)
  - DIZZINESS [None]
  - ARTHRALGIA [None]
  - BACK PAIN [None]
  - PAIN IN EXTREMITY [None]
  - DIARRHOEA [None]
  - LETHARGY [None]
  - FATIGUE [None]
  - ABDOMINAL PAIN [None]
